FAERS Safety Report 20258698 (Version 1)
Quarter: 2021Q4

REPORT INFORMATION
  Report Type: Report from Study
  Country: DE (occurrence: DE)
  Receive Date: 20211230
  Receipt Date: 20211230
  Transmission Date: 20220303
  Serious: Yes (Death, Hospitalization)
  Sender: FDA-Public Use
  Company Number: DE-KARYOPHARM-2021KPT001638

PATIENT
  Age: 48 Year
  Sex: Female
  Weight: 60 kg

DRUGS (11)
  1. SELINEXOR [Suspect]
     Active Substance: SELINEXOR
     Indication: Plasma cell myeloma
     Dosage: 60 MG, WEEKLY
     Route: 048
     Dates: start: 20210719, end: 202112
  2. VELCADE [Concomitant]
     Active Substance: BORTEZOMIB
     Indication: Plasma cell myeloma
     Dosage: UNK
     Dates: start: 202110
  3. DEXAMETHASONE [Concomitant]
     Active Substance: DEXAMETHASONE
     Indication: Plasma cell myeloma
     Dosage: UNK
     Dates: start: 20210719
  4. TORSEMIDE [Concomitant]
     Active Substance: TORSEMIDE
     Dosage: 10 MG, BID
  5. COTRIM [Concomitant]
     Active Substance: SULFAMETHOXAZOLE\TRIMETHOPRIM
     Dosage: 960 MG, QD ON MO, WE, FR
  6. SODIUM BICARBONATE [Concomitant]
     Active Substance: SODIUM BICARBONATE
     Dosage: 1 G, BID
  7. SODIUM BICARBONATE [Concomitant]
     Active Substance: SODIUM BICARBONATE
     Dosage: 2 G, QD DINNER
  8. ACYCLOVIR [Concomitant]
     Active Substance: ACYCLOVIR
     Dosage: 200 MG, QD ON MO, WED, FR
  9. ALUMINUM CHLOROHYDRATE [Concomitant]
     Active Substance: ALUMINUM CHLOROHYDRATE
     Dosage: 2 G, TID
  10. ROCALTROL [Concomitant]
     Active Substance: CALCITRIOL
     Dosage: 0.25 UG, WEEKLY ON MONDAYS
  11. DENOSUMAB [Concomitant]
     Active Substance: DENOSUMAB
     Dosage: 250 UG, ALL 4 WEEKS

REACTIONS (3)
  - Plasma cell myeloma [Fatal]
  - Thrombocytopenia [Recovering/Resolving]
  - Neutropenia [Recovering/Resolving]

NARRATIVE: CASE EVENT DATE: 20210726
